FAERS Safety Report 5948615-3 (Version None)
Quarter: 2008Q4

REPORT INFORMATION
  Report Type: 
  Country: None (occurrence: None)
  Receive Date: 20081111
  Receipt Date: 20081031
  Transmission Date: 20090506
  Serious: Yes (Death, Other)
  Sender: FDA-Public Use
  Company Number: US-MERCK-0811USA00835

PATIENT
  Age: 62 Year
  Sex: Female
  Weight: 58 kg

DRUGS (6)
  1. VYTORIN [Suspect]
     Indication: HYPERLIPIDAEMIA
     Route: 048
     Dates: start: 20070426, end: 20080722
  2. DILANTIN [Suspect]
     Indication: CONVULSION
     Route: 048
     Dates: start: 20051101, end: 20080722
  3. VITAMINS (UNSPECIFIED) [Concomitant]
     Route: 065
  4. NEURONTIN [Concomitant]
     Route: 065
  5. ACCUPRIL [Concomitant]
     Route: 065
     Dates: end: 20070409
  6. HYDRODIURIL [Concomitant]
     Route: 048

REACTIONS (3)
  - CONVULSION [None]
  - DEATH [None]
  - HAEMORRHAGE [None]
